FAERS Safety Report 7375216-5 (Version None)
Quarter: 2011Q1

REPORT INFORMATION
  Report Type: 
  Country: None (occurrence: None)
  Receive Date: 20110325
  Receipt Date: 20110314
  Transmission Date: 20110831
  Serious: Yes (Hospitalization)
  Sender: FDA-Public Use
  Company Number: US-ELI_LILLY_AND_COMPANY-US201101003098

PATIENT
  Age: 59 Year
  Sex: Female

DRUGS (14)
  1. FORTEO [Suspect]
     Indication: OSTEOPOROSIS
     Dosage: UNK, UNK
     Route: 065
     Dates: start: 20090601, end: 20110203
  2. ZANTAC [Concomitant]
     Dosage: 150 MG, DAILY (1/D)
     Dates: start: 19990101
  3. FOLIC ACID [Concomitant]
     Dosage: 400 UG, DAILY (1/D)
     Dates: start: 20100101
  4. CELEBREX [Concomitant]
     Indication: PAIN
     Dosage: 200 MG, 2/D
     Dates: start: 20100901
  5. FORTEO [Suspect]
     Dosage: UNK, UNK
     Dates: start: 20110215
  6. CALCIUM + VITAMIN D [Concomitant]
     Dosage: 500 MG, DAILY (1/D)
  7. VITAMIN D [Concomitant]
     Dosage: 50000 IU ONCE A WEEK
     Dates: start: 20100401
  8. SYNTHROID [Concomitant]
     Indication: HYPOTHYROIDISM
     Dosage: 100 UG, DAILY (1/D)
     Dates: start: 19880101
  9. GLIPIZIDE [Concomitant]
     Indication: DIABETES MELLITUS
     Dosage: 2.5 MG, DAILY (1/D)
     Dates: start: 20100901
  10. PREDNISONE [Concomitant]
     Dosage: 5 MG, 3/D
  11. TYLENOL                                 /SCH/ [Concomitant]
     Indication: PAIN
     Dosage: 1 G ONCE A DAY (AS NEEDED FOR PAIN)
     Dates: start: 20050101
  12. METOPROLOL [Concomitant]
     Indication: HEADACHE
     Dosage: 25 MG, DAILY (1/D)
  13. METFORMIN HYDROCHLORIDE [Concomitant]
     Indication: DIABETES MELLITUS
     Dosage: 500 MG, 2/D
     Dates: start: 20100901
  14. CIPRO [Concomitant]
     Dosage: 25 MG, DAILY (1/D) ( AS NEEDED WHEN ABCESS GETS REINFECTED)
     Dates: start: 19960101

REACTIONS (15)
  - CEREBROVASCULAR ACCIDENT [None]
  - DEHYDRATION [None]
  - DIZZINESS [None]
  - VERTIGO [None]
  - VOMITING [None]
  - HYPERTENSION [None]
  - INJECTION SITE DISCOLOURATION [None]
  - HYPERHIDROSIS [None]
  - NAUSEA [None]
  - ASTHENIA [None]
  - VISUAL ACUITY REDUCED [None]
  - HEADACHE [None]
  - EAR DISCOMFORT [None]
  - INJECTION SITE HAEMATOMA [None]
  - DIARRHOEA [None]
